FAERS Safety Report 15360029 (Version 3)
Quarter: 2018Q3

REPORT INFORMATION
  Report Type: Spontaneous
  Country: CH (occurrence: CH)
  Receive Date: 20180907
  Receipt Date: 20180921
  Transmission Date: 20181010
  Serious: Yes (Death, Other)
  Sender: FDA-Public Use
  Company Number: CH-ABBVIE-18K-151-2477669-00

PATIENT
  Age: 82 Year
  Sex: Female
  Weight: 68.6 kg

DRUGS (3)
  1. VENETOCLAX. [Suspect]
     Active Substance: VENETOCLAX
     Route: 048
     Dates: start: 20180830, end: 20180901
  2. VENETOCLAX. [Suspect]
     Active Substance: VENETOCLAX
     Route: 048
     Dates: start: 20180902, end: 20180903
  3. VENETOCLAX. [Suspect]
     Active Substance: VENETOCLAX
     Indication: T-CELL PROLYMPHOCYTIC LEUKAEMIA
     Route: 048
     Dates: start: 20180827, end: 20180830

REACTIONS (4)
  - Off label use [Unknown]
  - T-cell prolymphocytic leukaemia [Fatal]
  - Tissue infiltration [Unknown]
  - Drug ineffective [Fatal]

NARRATIVE: CASE EVENT DATE: 201808
